FAERS Safety Report 6457895-X (Version None)
Quarter: 2009Q4

REPORT INFORMATION
  Report Type: 
  Country: None (occurrence: None)
  Receive Date: 20091125
  Receipt Date: 20091118
  Transmission Date: 20100525
  Serious: Yes (Other)
  Sender: FDA-Public Use
  Company Number: BR-ABBOTT-09P-020-0609465-00

PATIENT
  Sex: Female
  Weight: 54 kg

DRUGS (16)
  1. HUMIRA [Suspect]
     Indication: RHEUMATOID ARTHRITIS
     Route: 058
  2. LANSOPRAZOLE [Concomitant]
     Indication: GASTRIC DISORDER
     Route: 050
     Dates: start: 20040101
  3. FOLIC ACID [Concomitant]
     Indication: ANAEMIA
     Route: 048
  4. LASIX [Concomitant]
     Indication: FLUID RETENTION
     Route: 048
  5. LOSARTAN [Concomitant]
     Indication: BLOOD PRESSURE
     Route: 048
  6. METHOTREXATE [Concomitant]
     Indication: RHEUMATOID ARTHRITIS
     Route: 048
  7. NAPROXEN [Concomitant]
     Indication: ANTIINFLAMMATORY THERAPY
     Route: 048
  8. OSCAL D [Concomitant]
     Indication: OSTEOPOROSIS
     Route: 048
     Dates: start: 20090801
  9. ACTONEL [Concomitant]
     Indication: OSTEOPOROSIS
     Route: 048
     Dates: start: 20091001
  10. TROMETAMOL [Concomitant]
     Indication: PAIN
     Route: 060
  11. ARTROSIL [Concomitant]
     Indication: PAIN
     Route: 048
     Dates: start: 20090801, end: 20090801
  12. FLUOXETINE [Concomitant]
     Indication: DEPRESSION
     Route: 048
  13. RIVOTRIL [Concomitant]
     Indication: SEDATIVE THERAPY
     Route: 048
  14. DUP [Concomitant]
     Indication: DEPRESSION
     Route: 048
     Dates: start: 20080401
  15. DUP [Concomitant]
     Indication: ANXIETY
  16. DUP [Concomitant]
     Indication: SMOKING CESSATION THERAPY

REACTIONS (10)
  - ABDOMINAL PAIN UPPER [None]
  - ARTHROPATHY [None]
  - FALL [None]
  - INFLUENZA [None]
  - INJECTION SITE HAEMATOMA [None]
  - INJECTION SITE VESICLES [None]
  - JOINT SPRAIN [None]
  - NIPPLE DISORDER [None]
  - RETCHING [None]
  - TENDON INJURY [None]
